FAERS Safety Report 17117146 (Version 3)
Quarter: 2019Q4

REPORT INFORMATION
  Report Type: Report from Study
  Country: US (occurrence: US)
  Receive Date: 20191205
  Receipt Date: 20191227
  Transmission Date: 20200122
  Serious: Yes (Death, Hospitalization, Other)
  Sender: FDA-Public Use
  Company Number: US-GLAXOSMITHKLINE-US2019TSO202226

PATIENT
  Sex: Female

DRUGS (1)
  1. NIRAPARIB [Suspect]
     Active Substance: NIRAPARIB
     Indication: OVARIAN CANCER
     Dosage: 300 MG, QD FOR 28 DAYS ON, 7 DAYS OFF.
     Route: 048
     Dates: start: 20191104

REACTIONS (8)
  - Haemorrhage [Unknown]
  - Adverse drug reaction [Unknown]
  - Insomnia [Unknown]
  - Asthenia [Unknown]
  - Death [Fatal]
  - Fatigue [Unknown]
  - Rash [Unknown]
  - Platelet count decreased [Unknown]
